FAERS Safety Report 12496506 (Version 2)
Quarter: 2016Q3

REPORT INFORMATION
  Report Type: Spontaneous
  Country: US (occurrence: US)
  Receive Date: 20160624
  Receipt Date: 20160811
  Transmission Date: 20161109
  Serious: Yes (Other)
  Sender: FDA-Public Use
  Company Number: US-GLAXOSMITHKLINE-US2016086731

PATIENT
  Age: 75 Year
  Sex: Female
  Weight: 48.73 kg

DRUGS (4)
  1. COQ 10 [Concomitant]
     Active Substance: UBIDECARENONE
  2. VENTOLIN HFA [Suspect]
     Active Substance: ALBUTEROL SULFATE
     Indication: ASTHMA
     Dosage: 1 PUFF(S), BID
     Route: 055
     Dates: start: 20141208, end: 20160609
  3. FISH OIL [Concomitant]
     Active Substance: FISH OIL
  4. CALCIUM [Concomitant]
     Active Substance: CALCIUM

REACTIONS (8)
  - Throat irritation [Recovering/Resolving]
  - Dysphagia [Recovering/Resolving]
  - Ear discomfort [Recovering/Resolving]
  - Pharyngeal oedema [Recovering/Resolving]
  - Choking [Recovering/Resolving]
  - Feeding disorder [Unknown]
  - Candida infection [Unknown]
  - Pharyngeal mass [Unknown]

NARRATIVE: CASE EVENT DATE: 20160718
